FAERS Safety Report 7913502-8 (Version None)
Quarter: 2011Q4

REPORT INFORMATION
  Report Type: 
  Country: None (occurrence: None)
  Receive Date: 20111110
  Receipt Date: 20111017
  Transmission Date: 20120403
  Serious: Yes (Other)
  Sender: FDA-Public Use
  Company Number: 2011SP048968

PATIENT

DRUGS (2)
  1. PEGINTERFERON ALFA-2B [Suspect]
     Indication: HEPATITIS C
     Dosage: 1.5 MCG; QW; SC
     Route: 058
  2. RIBAVIRIN [Concomitant]

REACTIONS (7)
  - PYREXIA [None]
  - LYMPHADENITIS [None]
  - LYMPHADENOPATHY [None]
  - WEIGHT DECREASED [None]
  - TUBERCULOSIS [None]
  - COUGH [None]
  - CULTURE POSITIVE [None]
